FAERS Safety Report 22352108 (Version 1)
Quarter: 2023Q2

REPORT INFORMATION
  Report Type: Spontaneous
  Country: US (occurrence: None)
  Receive Date: 20230522
  Receipt Date: 20230522
  Transmission Date: 20230721
  Serious: No
  Sender: FDA-Public Use
  Company Number: None

PATIENT
  Age: 61 Year
  Sex: Female

DRUGS (1)
  1. ZOLEDRONIC ACID [Suspect]
     Active Substance: ZOLEDRONIC ACID
     Route: 041
     Dates: start: 20230519, end: 20230519

REACTIONS (7)
  - Bone pain [None]
  - Myalgia [None]
  - Eye irritation [None]
  - Ocular discomfort [None]
  - Chills [None]
  - Ocular hyperaemia [None]
  - Visual impairment [None]

NARRATIVE: CASE EVENT DATE: 20230520
